FAERS Safety Report 24902289 (Version 2)
Quarter: 2025Q1

REPORT INFORMATION
  Report Type: Spontaneous
  Country: US (occurrence: None)
  Receive Date: 20250130
  Receipt Date: 20250326
  Transmission Date: 20250409
  Serious: Yes (Death, Other)
  Sender: MDD OPERATIONS
  Company Number: US-MDD US Operations-MDD202412-004766

PATIENT
  Age: 74 Year
  Sex: Male

DRUGS (1)
  1. APOKYN [Suspect]
     Active Substance: APOMORPHINE HYDROCHLORIDE
     Indication: Parkinson^s disease

REACTIONS (7)
  - Death [Fatal]
  - Dysphagia [Unknown]
  - Dyspnoea [Unknown]
  - Gastrooesophageal reflux disease [Unknown]
  - Panic attack [Unknown]
  - Emergency care [Unknown]
  - Anxiety [Unknown]

NARRATIVE: CASE EVENT DATE: 20241201
